FAERS Safety Report 9320278 (Version 4)
Quarter: 2013Q4

REPORT INFORMATION
  Report Type: Spontaneous
  Country: US (occurrence: US)
  Receive Date: 20130530
  Receipt Date: 20131121
  Transmission Date: 20140711
  Serious: Yes (Hospitalization)
  Sender: FDA-Public Use
  Company Number: US-B.I. PHARMACEUTICALS,INC./RIDGEFIELD-2013-BI-14431BP

PATIENT
  Age: 85 Year
  Sex: Female
  Weight: 65.77 kg

DRUGS (10)
  1. PRADAXA [Suspect]
     Indication: ANTICOAGULANT THERAPY
     Dates: start: 20110312, end: 20110610
  2. PRADAXA [Suspect]
     Indication: ATRIAL FIBRILLATION
  3. LEVOTHYROXINE [Concomitant]
     Dosage: 50 MCG
  4. SOTALOL [Concomitant]
     Dosage: 240 MG
  5. PRILOSEC [Concomitant]
  6. LISINOPRIL [Concomitant]
     Dosage: 20 MG
  7. BUPROPION [Concomitant]
  8. BACTRIM [Concomitant]
     Route: 048
  9. PHENAZOPYRIDINE [Concomitant]
     Dosage: 600 MG
  10. ALPRAZOLAM [Concomitant]

REACTIONS (2)
  - Gastrointestinal haemorrhage [Unknown]
  - Anaemia [Unknown]
